FAERS Safety Report 6965910-X (Version None)
Quarter: 2010Q3

REPORT INFORMATION
  Report Type: 
  Country: None (occurrence: None)
  Receive Date: 20100903
  Receipt Date: 20100827
  Transmission Date: 20110219
  Serious: Yes (Other)
  Sender: FDA-Public Use
  Company Number: US-PFIZER INC-2010084241

PATIENT
  Sex: Male
  Weight: 110 kg

DRUGS (2)
  1. CHANTIX [Suspect]
     Indication: SMOKING CESSATION THERAPY
     Dosage: UNK
     Route: 048
     Dates: start: 20100601
  2. BUSPAR [Concomitant]
     Indication: DEPRESSION
     Dosage: UNK

REACTIONS (2)
  - DEPRESSION [None]
  - MENTAL DISORDER [None]
